FAERS Safety Report 12370777 (Version 1)
Quarter: 2016Q2

REPORT INFORMATION
  Report Type: Spontaneous
  Country: FR (occurrence: FR)
  Receive Date: 20160516
  Receipt Date: 20160516
  Transmission Date: 20160815
  Serious: Yes (Life-Threatening)
  Sender: FDA-Public Use
  Company Number: FR-ROCHE-1756324

PATIENT
  Sex: Female
  Weight: 38 kg

DRUGS (5)
  1. TRIATEC (FRANCE) [Concomitant]
     Active Substance: RAMIPRIL
  2. CARDENSIEL [Concomitant]
     Active Substance: BISOPROLOL FUMARATE
  3. IXPRIM [Concomitant]
     Active Substance: ACETAMINOPHEN\TRAMADOL HYDROCHLORIDE
  4. CRESTOR [Concomitant]
     Active Substance: ROSUVASTATIN CALCIUM
  5. AVASTIN [Suspect]
     Active Substance: BEVACIZUMAB
     Indication: BREAST CANCER RECURRENT
     Route: 042
     Dates: end: 201406

REACTIONS (2)
  - Bronchial fistula [Recovered/Resolved with Sequelae]
  - Tumour ulceration [Recovered/Resolved with Sequelae]

NARRATIVE: CASE EVENT DATE: 20140625
